FAERS Safety Report 4681513-4 (Version None)
Quarter: 2005Q2

REPORT INFORMATION
  Report Type: 
  Country: None (occurrence: None)
  Receive Date: 20050602
  Receipt Date: 20050520
  Transmission Date: 20051028
  Serious: Yes (Death)
  Sender: FDA-Public Use
  Company Number: 2005077413

PATIENT
  Age: 77 Year
  Sex: Female

DRUGS (7)
  1. AROMASIN [Suspect]
     Indication: BREAST CANCER
     Dates: end: 20041001
  2. OLMESARTAN (OLMESARTAN) [Suspect]
     Indication: HYPERTENSION
     Dosage: ORAL
     Dates: end: 20041001
  3. ACETAMINOPHEN [Concomitant]
  4. THEOPHYLLINE [Concomitant]
  5. HYDROCHLOROTHIAZIDE [Concomitant]
  6. ADVAIR (FLUTICASONE PROPIONATE, SALMETEROL XINAFOATE) [Concomitant]
  7. ALBUTEROL [Concomitant]

REACTIONS (5)
  - CARDIO-RESPIRATORY ARREST [None]
  - DEPRESSED LEVEL OF CONSCIOUSNESS [None]
  - HAEMODIALYSIS [None]
  - OESOPHAGITIS HAEMORRHAGIC [None]
  - RENAL FAILURE ACUTE [None]
